FAERS Safety Report 20663489 (Version 2)
Quarter: 2022Q3

REPORT INFORMATION
  Report Type: Report from Study
  Country: BR (occurrence: BR)
  Receive Date: 20220401
  Receipt Date: 20220721
  Transmission Date: 20221027
  Serious: Yes (Hospitalization, Other)
  Sender: FDA-Public Use
  Company Number: BR-JNJFOC-20220355102

PATIENT
  Age: 7 Decade
  Sex: Female
  Weight: 72 kg

DRUGS (1)
  1. SIMPONI [Suspect]
     Active Substance: GOLIMUMAB
     Indication: Rheumatoid arthritis
     Route: 058

REACTIONS (5)
  - COVID-19 [Recovered/Resolved]
  - Rheumatoid arthritis [Recovering/Resolving]
  - Pruritus [Not Recovered/Not Resolved]
  - Alopecia [Not Recovered/Not Resolved]
  - Electrocardiogram change [Unknown]

NARRATIVE: CASE EVENT DATE: 20210901
